FAERS Safety Report 23087185 (Version 1)
Quarter: 2023Q4

REPORT INFORMATION
  Report Type: Spontaneous
  Country: US (occurrence: US)
  Receive Date: 20231020
  Receipt Date: 20231020
  Transmission Date: 20240110
  Serious: Yes (Life-Threatening, Hospitalization, Other)
  Sender: FDA-Public Use
  Company Number: US-MLMSERVICE-20231005-4586156-1

PATIENT
  Age: 34 Year
  Sex: Male

DRUGS (1)
  1. SULFAMETHOXAZOLE\TRIMETHOPRIM [Suspect]
     Active Substance: SULFAMETHOXAZOLE\TRIMETHOPRIM
     Indication: Prostatitis
     Dosage: UNK (ON A PROLONGED COURSE)
     Route: 065

REACTIONS (4)
  - Endocarditis pseudomonal [Unknown]
  - Interstitial lung disease [Unknown]
  - Acute respiratory distress syndrome [Unknown]
  - Shock [Unknown]
